FAERS Safety Report 14389644 (Version 3)
Quarter: 2019Q2

REPORT INFORMATION
  Report Type: Spontaneous
  Country: US (occurrence: US)
  Receive Date: 20180115
  Receipt Date: 20190624
  Transmission Date: 20190711
  Serious: Yes (Other)
  Sender: FDA-Public Use
  Company Number: US-SA-2016SA056457

PATIENT
  Age: 40 Year
  Sex: Female
  Weight: 54.43 kg

DRUGS (6)
  1. TAXOTERE [Suspect]
     Active Substance: DOCETAXEL
     Indication: BREAST CANCER FEMALE
     Dosage: 120 MG,QOW
     Route: 042
     Dates: start: 20100504, end: 20100504
  2. CYCLOPHOSPHAMIDE. [Concomitant]
     Active Substance: CYCLOPHOSPHAMIDE
     Dosage: 940 MG,QCY
     Route: 042
     Dates: start: 20100810, end: 20100810
  3. TAXOTERE [Suspect]
     Active Substance: DOCETAXEL
     Dosage: 120 MG,QOW
     Route: 042
     Dates: start: 20100808, end: 20100808
  4. CYCLOPHOSPHAMIDE. [Concomitant]
     Active Substance: CYCLOPHOSPHAMIDE
     Dosage: 940 MG,QCY
     Route: 042
     Dates: start: 20100504, end: 20100504
  5. CYTOXAN [Concomitant]
     Active Substance: CYCLOPHOSPHAMIDE
  6. SYNTHROID [Concomitant]
     Active Substance: LEVOTHYROXINE SODIUM
     Dosage: UNK UNK,UNK
     Route: 065
     Dates: start: 199506

REACTIONS (6)
  - Emotional distress [Unknown]
  - Impaired quality of life [Unknown]
  - Alopecia [Not Recovered/Not Resolved]
  - Pain [Unknown]
  - Anxiety [Unknown]
  - Psychological trauma [Unknown]

NARRATIVE: CASE EVENT DATE: 201103
